FAERS Safety Report 11269162 (Version 1)
Quarter: 2015Q3

REPORT INFORMATION
  Report Type: Spontaneous
  Country: US (occurrence: US)
  Receive Date: 20150714
  Receipt Date: 20150714
  Transmission Date: 20151125
  Serious: No
  Sender: FDA-Public Use
  Company Number: PHEH2015US004763

PATIENT
  Sex: Female

DRUGS (5)
  1. HYZAAR [Suspect]
     Active Substance: HYDROCHLOROTHIAZIDE\LOSARTAN POTASSIUM
     Indication: HYPERTENSION
     Dosage: UNK UNK, QD
     Route: 048
  2. EXFORGE HCT [Suspect]
     Active Substance: AMLODIPINE BESYLATE\HYDROCHLOROTHIAZIDE\VALSARTAN
     Indication: PRODUCT USED FOR UNKNOWN INDICATION
     Route: 065
  3. DIOVAN [Suspect]
     Active Substance: VALSARTAN
     Indication: HYPERTENSION
     Dosage: UNK , QD
     Route: 048
  4. TOPROL XL [Suspect]
     Active Substance: METOPROLOL SUCCINATE
     Indication: HYPERTENSION
     Dosage: UNK UNK, QD
     Route: 048
  5. BENICAR [Suspect]
     Active Substance: OLMESARTAN MEDOXOMIL
     Indication: HYPERTENSION
     Dosage: UNK UNK, QD
     Route: 048

REACTIONS (13)
  - Pain [Recovered/Resolved]
  - Bone pain [Unknown]
  - Myalgia [Recovered/Resolved]
  - Oedema [Unknown]
  - Cough [Recovered/Resolved]
  - Joint swelling [Unknown]
  - Upper-airway cough syndrome [Unknown]
  - Dizziness [Recovered/Resolved]
  - Swelling [Recovered/Resolved]
  - Drug ineffective [Unknown]
  - Palpitations [Unknown]
  - Eye swelling [Unknown]
  - Blood pressure inadequately controlled [Unknown]
